FAERS Safety Report 20743785 (Version 2)
Quarter: 2022Q3

REPORT INFORMATION
  Report Type: Spontaneous
  Country: JP (occurrence: JP)
  Receive Date: 20220425
  Receipt Date: 20220718
  Transmission Date: 20221026
  Serious: Yes (Hospitalization, Other)
  Sender: FDA-Public Use
  Company Number: JP-LUPIN PHARMACEUTICALS INC.-2022-05943

PATIENT
  Age: 78 Year
  Sex: Female

DRUGS (5)
  1. BETAMETHASONE [Suspect]
     Active Substance: BETAMETHASONE
     Indication: Ulcerative keratitis
     Dosage: UNK, QID
     Route: 061
     Dates: start: 2016
  2. BETAMETHASONE [Suspect]
     Active Substance: BETAMETHASONE
     Dosage: UNK, QID
     Route: 061
     Dates: start: 2016
  3. TACROLIMUS [Suspect]
     Active Substance: TACROLIMUS
     Indication: Ulcerative keratitis
     Dosage: UNK, QID
     Route: 061
     Dates: start: 2016
  4. CYCLOSPORINE [Suspect]
     Active Substance: CYCLOSPORINE
     Indication: Ulcerative keratitis
     Dosage: 100 MG, QD
     Route: 048
     Dates: start: 2016
  5. METHYLPREDNISOLONE [Concomitant]
     Active Substance: METHYLPREDNISOLONE
     Indication: Ulcerative keratitis
     Dosage: 500 MG
     Route: 042

REACTIONS (6)
  - Corneal endotheliitis [Recovering/Resolving]
  - Cytomegalovirus infection [Recovering/Resolving]
  - Mydriasis [Unknown]
  - Visual field defect [Unknown]
  - Cataract [Unknown]
  - Glaucoma [Unknown]

NARRATIVE: CASE EVENT DATE: 20190601
